FAERS Safety Report 5792915-7 (Version None)
Quarter: 2008Q2

REPORT INFORMATION
  Report Type: 
  Country: None (occurrence: None)
  Receive Date: 20080627
  Receipt Date: 20071011
  Transmission Date: 20081010
  Serious: No
  Sender: FDA-Public Use
  Company Number: US-BAYER-US-2007-040425

PATIENT
  Age: 42 Year
  Sex: Female

DRUGS (2)
  1. ULTRAVIST (PHARMACY BULK) [Suspect]
     Indication: COMPUTERISED TOMOGRAM
     Dosage: TOTAL DAILY DOSE: 125 ML  UNIT DOSE: 125 ML
     Route: 042
     Dates: start: 20070716, end: 20070716
  2. CONTRAST MEDIA [Concomitant]

REACTIONS (5)
  - DIZZINESS [None]
  - FLUSHING [None]
  - SNEEZING [None]
  - TACHYCARDIA [None]
  - THROAT IRRITATION [None]
